FAERS Safety Report 6503650-1 (Version None)
Quarter: 2009Q4

REPORT INFORMATION
  Report Type: 
  Country: None (occurrence: None)
  Receive Date: 20091217
  Receipt Date: 20091126
  Transmission Date: 20100525
  Serious: Yes (Other)
  Sender: FDA-Public Use
  Company Number: A0835315A

PATIENT
  Sex: Female

DRUGS (1)
  1. CLINDOXYL [Suspect]
     Dosage: 1APP AT NIGHT
     Route: 061
     Dates: start: 20091121, end: 20091122

REACTIONS (3)
  - PRURITUS [None]
  - RASH MACULAR [None]
  - URTICARIA [None]
